FAERS Safety Report 10671622 (Version 1)
Quarter: 2014Q4

REPORT INFORMATION
  Report Type: Spontaneous
  Country: US (occurrence: US)
  Receive Date: 20141223
  Receipt Date: 20141223
  Transmission Date: 20150529
  Serious: No
  Sender: FDA-Public Use
  Company Number: US-GLAXOSMITHKLINE-US2014GSK040241

PATIENT
  Age: 73 Year
  Sex: Female

DRUGS (7)
  1. ATORVASTATIN [Concomitant]
     Active Substance: ATORVASTATIN
  2. ADVAIR DISKUS [Suspect]
     Active Substance: FLUTICASONE PROPIONATE\SALMETEROL XINAFOATE
     Indication: ASTHMA
     Dosage: 1 PUFF(S), QD
     Route: 055
     Dates: start: 2004
  3. K TAB [Concomitant]
  4. LOSARTAN [Concomitant]
     Active Substance: LOSARTAN
  5. NADOLOL. [Concomitant]
     Active Substance: NADOLOL
  6. TRIAMTERENE + HYDROCHLOROTHIAZIDE TABLET [Concomitant]
  7. ALBUTEROL SULFATE. [Concomitant]
     Active Substance: ALBUTEROL SULFATE

REACTIONS (4)
  - Wheezing [Recovered/Resolved]
  - Drug ineffective [Recovered/Resolved]
  - Drug administration error [Recovered/Resolved]
  - Cough [Not Recovered/Not Resolved]

NARRATIVE: CASE EVENT DATE: 201409
